FAERS Safety Report 9462682 (Version 2)
Quarter: 2014Q1

REPORT INFORMATION
  Report Type: Spontaneous
  Country: US (occurrence: US)
  Receive Date: 20130816
  Receipt Date: 20140306
  Transmission Date: 20141002
  Serious: Yes (Other)
  Sender: FDA-Public Use
  Company Number: US201104004296

PATIENT
  Age: 66 Year
  Sex: Female
  Weight: 81.63 kg

DRUGS (19)
  1. BYETTA [Suspect]
     Indication: TYPE 2 DIABETES MELLITUS
     Dates: start: 20060209, end: 20100930
  2. JANUMET [Suspect]
     Indication: TYPE 2 DIABETES MELLITUS
     Dates: start: 20071129, end: 20080214
  3. VICTOZA [Suspect]
     Indication: TYPE 2 DIABETES MELLITUS
     Dates: start: 20100930, end: 20101213
  4. LANTUS [Concomitant]
     Dosage: 1F-60UNITS
  5. SYNTHROID [Concomitant]
  6. TOPROL XL [Concomitant]
  7. DIOVAN [Concomitant]
     Dosage: 1DF-160UNITS NOS
  8. ISOSORBIDE MONONITRATE [Concomitant]
     Dosage: 1DF=60UNITS NOS
  9. FLUCONAZOLE [Concomitant]
     Dosage: 1DF=100 UNITS NOS
  10. LEVAQUIN [Concomitant]
     Dosage: 1DF=500 UNITS NOS
  11. CYMBALTA [Concomitant]
     Dosage: 1DF=30 UNITS NOS
  12. INSULIN [Concomitant]
  13. VICTOZA [Concomitant]
  14. METOPROLOL [Concomitant]
  15. DIOVAN [Concomitant]
  16. ISOSORBIDE [Concomitant]
  17. LEVOTHYROXINE [Concomitant]
  18. NEXIUM [Concomitant]
  19. CYMBALTA [Concomitant]

REACTIONS (2)
  - Pancreatic carcinoma [Unknown]
  - Nausea [Unknown]
